FAERS Safety Report 12917110 (Version 1)
Quarter: 2016Q4

REPORT INFORMATION
  Report Type: Spontaneous
  Country: US (occurrence: US)
  Receive Date: 20161107
  Receipt Date: 20161107
  Transmission Date: 20170207
  Serious: No
  Sender: FDA-Public Use
  Company Number: US-JAZZ-2016-US-017496

PATIENT
  Sex: Female

DRUGS (47)
  1. KETOTIFEN [Concomitant]
     Active Substance: KETOTIFEN
  2. DOXYCYCLINE HYCLATE. [Concomitant]
     Active Substance: DOXYCYCLINE HYCLATE
  3. FERROUS SULFATE. [Concomitant]
     Active Substance: FERROUS SULFATE
  4. CYCLOBENZAPRINE [Concomitant]
     Active Substance: CYCLOBENZAPRINE
  5. FIORICET [Concomitant]
     Active Substance: ACETAMINOPHEN\BUTALBITAL\CAFFEINE
  6. NASONEX [Concomitant]
     Active Substance: MOMETASONE FUROATE
  7. XOPENEX HFA [Concomitant]
     Active Substance: LEVALBUTEROL TARTRATE
  8. COQ10 [Concomitant]
     Active Substance: UBIDECARENONE
  9. FLUCONAZOLE. [Concomitant]
     Active Substance: FLUCONAZOLE
  10. LEVOCETIRIZINE [Concomitant]
     Active Substance: LEVOCETIRIZINE
  11. SPIRONOLACTONE. [Concomitant]
     Active Substance: SPIRONOLACTONE
  12. SINGULAIR [Concomitant]
     Active Substance: MONTELUKAST SODIUM
  13. BEPREVE [Concomitant]
     Active Substance: BEPOTASTINE BESILATE
  14. XOLAIR [Concomitant]
     Active Substance: OMALIZUMAB
  15. HYDROXYZINE HCL [Concomitant]
     Active Substance: HYDROXYZINE HYDROCHLORIDE
  16. PREDNISONE. [Concomitant]
     Active Substance: PREDNISONE
  17. METFORMIN HCL [Concomitant]
     Active Substance: METFORMIN HYDROCHLORIDE
  18. DILAUDID [Concomitant]
     Active Substance: HYDROMORPHONE HYDROCHLORIDE
  19. OMEGA 3 FISH OIL [Concomitant]
     Active Substance: FISH OIL\OMEGA-3 FATTY ACIDS
  20. DONNATAL [Concomitant]
     Active Substance: ATROPINE SULFATE\HYOSCYAMINE SULFATE\PHENOBARBITAL\SCOPOLAMINE HYDROBROMIDE
  21. MONTELUKAST [Concomitant]
     Active Substance: MONTELUKAST SODIUM
  22. VAGIFEM [Concomitant]
     Active Substance: ESTRADIOL
  23. DEXAMETHASONE. [Concomitant]
     Active Substance: DEXAMETHASONE
  24. HORIZANT [Concomitant]
     Active Substance: GABAPENTIN ENACARBIL
  25. CELEBREX [Concomitant]
     Active Substance: CELECOXIB
  26. CLONAZEPAM. [Concomitant]
     Active Substance: CLONAZEPAM
  27. DEXILANT [Concomitant]
     Active Substance: DEXLANSOPRAZOLE
  28. NEXIUM [Concomitant]
     Active Substance: ESOMEPRAZOLE MAGNESIUM
  29. PROVIGIL [Concomitant]
     Active Substance: MODAFINIL
  30. XYREM [Suspect]
     Active Substance: SODIUM OXYBATE
     Indication: NARCOLEPSY
     Dosage: 2.25 G, BID
     Route: 048
     Dates: start: 201506, end: 201507
  31. BOTOX [Suspect]
     Active Substance: ONABOTULINUMTOXINA
     Indication: MIGRAINE
     Dosage: UNK
     Dates: start: 2004
  32. CRESTOR [Concomitant]
     Active Substance: ROSUVASTATIN CALCIUM
  33. VENTOLIN HFA [Concomitant]
     Active Substance: ALBUTEROL SULFATE
  34. VIVELLE-DOT [Concomitant]
     Active Substance: ESTRADIOL
  35. NORCO [Concomitant]
     Active Substance: ACETAMINOPHEN\HYDROCODONE BITARTRATE
  36. XYREM [Suspect]
     Active Substance: SODIUM OXYBATE
     Indication: CATAPLEXY
     Dosage: DOSE ADJUSTMENTS
     Route: 048
     Dates: start: 201507, end: 201507
  37. XYREM [Suspect]
     Active Substance: SODIUM OXYBATE
     Dosage: 4.5 G, BID
     Route: 048
     Dates: start: 201507
  38. MAGNESIUM GLUCONICUM [Concomitant]
  39. HYDROCHLOROTHIAZIDE. [Concomitant]
     Active Substance: HYDROCHLOROTHIAZIDE
  40. METAXALONE. [Concomitant]
     Active Substance: METAXALONE
  41. NEUPRO [Concomitant]
     Active Substance: ROTIGOTINE
  42. FENTANYL. [Concomitant]
     Active Substance: FENTANYL
  43. VIIBRYD [Concomitant]
     Active Substance: VILAZODONE HYDROCHLORIDE
  44. DULERA [Concomitant]
     Active Substance: FORMOTEROL FUMARATE DIHYDRATE\MOMETASONE FUROATE
  45. MODAFINIL. [Concomitant]
     Active Substance: MODAFINIL
  46. RITALIN [Concomitant]
     Active Substance: METHYLPHENIDATE HYDROCHLORIDE
  47. VITAMIN D [Concomitant]
     Active Substance: CHOLECALCIFEROL

REACTIONS (1)
  - Injection site haemorrhage [Unknown]
